FAERS Safety Report 23843465 (Version 1)
Quarter: 2024Q2

REPORT INFORMATION
  Report Type: Spontaneous
  Country: US (occurrence: None)
  Receive Date: 20240510
  Receipt Date: 20240510
  Transmission Date: 20240716
  Serious: Yes (Death)
  Sender: FDA-Public Use
  Company Number: None

PATIENT
  Age: 86 Year
  Sex: Male
  Weight: 81.6 kg

DRUGS (22)
  1. ABIRATERONE [Suspect]
     Active Substance: ABIRATERONE
     Indication: Prostate cancer
     Dosage: FREQUENCY : DAILY;?
     Route: 048
     Dates: start: 20231101, end: 20240428
  2. ALPRAZOLAM [Concomitant]
     Active Substance: ALPRAZOLAM
  3. AMLODIPINE [Concomitant]
     Active Substance: AMLODIPINE BESYLATE
  4. aspirin 81mg ec [Concomitant]
  5. ATORVASTATIN [Concomitant]
     Active Substance: ATORVASTATIN
  6. CETIRIZINE [Concomitant]
     Active Substance: CETIRIZINE HYDROCHLORIDE
  7. coznezyme q 10mg [Concomitant]
  8. cranberry 400mg [Concomitant]
  9. ESCITALOPRAM [Concomitant]
     Active Substance: ESCITALOPRAM OXALATE
  10. ZETIA [Concomitant]
     Active Substance: EZETIMIBE
  11. FAMOTIDINE [Concomitant]
     Active Substance: FAMOTIDINE
  12. FUROSEMIDE [Concomitant]
     Active Substance: FUROSEMIDE
  13. isosorbide mononitrate 30mg er [Concomitant]
  14. LEVOTHYROXINE [Concomitant]
     Active Substance: LEVOTHYROXINE\LEVOTHYROXINE SODIUM
  15. metoprolol er 50mg [Concomitant]
  16. Omega 3 1000mg [Concomitant]
  17. probiotic softgels [Concomitant]
  18. red yeast rice 600mg [Concomitant]
  19. saw palmetto 160mg [Concomitant]
  20. TAMSULOSIN [Concomitant]
     Active Substance: TAMSULOSIN
  21. Venofer 20mg/ml [Concomitant]
  22. LUPRON DEPOT [Concomitant]
     Active Substance: LEUPROLIDE ACETATE

REACTIONS (2)
  - Prostate cancer [None]
  - Malignant neoplasm progression [None]

NARRATIVE: CASE EVENT DATE: 20240428
